FAERS Safety Report 5049867-7 (Version None)
Quarter: 2006Q3

REPORT INFORMATION
  Report Type: 
  Country: None (occurrence: None)
  Receive Date: 20060706
  Receipt Date: 20060622
  Transmission Date: 20061208
  Serious: Yes (Other)
  Sender: FDA-Public Use
  Company Number: GXKR2006US03514

PATIENT
  Age: 43 Year
  Sex: Female

DRUGS (7)
  1. BUPROPION (NGX) (BUPROPION) [Suspect]
     Indication: DEPRESSION
     Dosage: 450 MG, QD
  2. RILUZOLE (RILUZOLE) [Suspect]
     Indication: DEPRESSION
     Dosage: 50 MG, BID
  3. MEMANTINE HCL [Suspect]
     Indication: DEPRESSION
     Dosage: SEE IMAGE
  4. LITHIUM CARBONATE [Concomitant]
  5. AMOXAPINE [Concomitant]
  6. TIAGABINE HCL [Concomitant]
  7. DIAZEPAM [Concomitant]

REACTIONS (4)
  - DRUG INTERACTION [None]
  - EMOTIONAL DISTRESS [None]
  - HALLUCINATION [None]
  - HALLUCINATION, VISUAL [None]
